FAERS Safety Report 26030464 (Version 1)
Quarter: 2025Q4

REPORT INFORMATION
  Report Type: Spontaneous
  Country: JP (occurrence: JP)
  Receive Date: 20251112
  Receipt Date: 20251112
  Transmission Date: 20260119
  Serious: Yes (Other)
  Sender: AMGEN
  Company Number: JP-DSJP-DS-2025-174800-

PATIENT
  Age: 75 Year
  Sex: Female

DRUGS (1)
  1. DENOSUMAB [Suspect]
     Active Substance: DENOSUMAB
     Indication: Product used for unknown indication
     Dosage: 60 MG, ONCE EVERY 6 MO
     Route: 065
     Dates: start: 202505

REACTIONS (1)
  - Internal injury [Unknown]

NARRATIVE: CASE EVENT DATE: 20250101
